FAERS Safety Report 6955970-4 (Version None)
Quarter: 2010Q3

REPORT INFORMATION
  Report Type: 
  Country: None (occurrence: None)
  Receive Date: 20100826
  Receipt Date: 20100813
  Transmission Date: 20110219
  Serious: Yes (Hospitalization)
  Sender: FDA-Public Use
  Company Number: LEO-2010-00746

PATIENT
  Age: 17 Year
  Sex: Male

DRUGS (4)
  1. INNOHEP [Suspect]
     Indication: VENA CAVA THROMBOSIS
     Dosage: SUBCUTANEOUS
     Route: 058
     Dates: start: 20090120, end: 20090101
  2. INNOHEP [Suspect]
     Indication: VENA CAVA THROMBOSIS
     Dosage: SUBCUTANEOUS
     Route: 058
     Dates: start: 20100424, end: 20100501
  3. COUMADIN [Suspect]
     Indication: VENA CAVA THROMBOSIS
     Dates: start: 20091201, end: 20100501
  4. GAMMAGARD [Concomitant]

REACTIONS (9)
  - BLOOD CREATININE INCREASED [None]
  - DUODENAL ULCER [None]
  - FAECES DISCOLOURED [None]
  - GASTRITIS [None]
  - HAEMATEMESIS [None]
  - HAEMOGLOBIN DECREASED [None]
  - HEADACHE [None]
  - HYPOPROTHROMBINAEMIA [None]
  - SCAR [None]
